FAERS Safety Report 8045679-0 (Version None)
Quarter: 2012Q1

REPORT INFORMATION
  Report Type: 
  Country: None (occurrence: None)
  Receive Date: 20120110
  Receipt Date: 20120103
  Transmission Date: 20120608
  Serious: Yes (Death)
  Sender: FDA-Public Use
  Company Number: 2011ST000513

PATIENT
  Age: 65 Year
  Sex: Male

DRUGS (1)
  1. MATULANE [Suspect]
     Indication: LYMPHOMA
     Dosage: 200 MG; QD; PO
     Route: 048
     Dates: start: 20110912, end: 20111101

REACTIONS (2)
  - LYMPHOMA [None]
  - DISEASE PROGRESSION [None]
